FAERS Safety Report 7151939-8 (Version None)
Quarter: 2010Q4

REPORT INFORMATION
  Report Type: 
  Country: None (occurrence: None)
  Receive Date: 20101210
  Receipt Date: 20101125
  Transmission Date: 20110411
  Serious: Yes (Hospitalization)
  Sender: FDA-Public Use
  Company Number: DE-AMGEN-DEUCT2010007971

PATIENT

DRUGS (3)
  1. ENBREL [Suspect]
     Indication: PRODUCT USED FOR UNKNOWN INDICATION
     Dosage: 50 MG, WEEKLY
     Dates: start: 20081201
  2. ARCOXIA [Concomitant]
  3. ARAVA [Concomitant]
     Dosage: 20 MG, EVERY SECOND DAY

REACTIONS (2)
  - UTERINE LEIOMYOMA [None]
  - UTERINE OPERATION [None]
